FAERS Safety Report 7038088-4 (Version None)
Quarter: 2010Q4

REPORT INFORMATION
  Report Type: 
  Country: None (occurrence: None)
  Receive Date: 20101011
  Receipt Date: 20101001
  Transmission Date: 20110411
  Serious: Yes (Hospitalization)
  Sender: FDA-Public Use
  Company Number: US-PFIZER INC-2010124896

PATIENT
  Sex: Female

DRUGS (13)
  1. LIPITOR [Suspect]
     Dosage: UNK
  2. SIMVASTATIN/NIACIN [Suspect]
     Indication: BLOOD CHOLESTEROL INCREASED
     Dosage: 500/20 MG, UNK
     Route: 065
     Dates: start: 20100801
  3. ERGOCALCIFEROL [Concomitant]
     Dosage: UNK
  4. CARVEDILOL [Concomitant]
  5. OXYCODONE [Concomitant]
  6. MORPHINE [Concomitant]
  7. TIZANIDINE [Concomitant]
  8. OMEGA-3 MARINE TRIGLYCERIDES [Concomitant]
  9. LORAZEPAM [Concomitant]
  10. ROPINIROLE HYDROCHLORIDE [Concomitant]
  11. BUPROPION HYDROCHLORIDE [Concomitant]
  12. DOXEPIN [Concomitant]
  13. SITAGLIPTIN PHOSPHATE [Concomitant]

REACTIONS (7)
  - ABASIA [None]
  - DEHYDRATION [None]
  - HEPATIC ENZYME INCREASED [None]
  - HYPOAESTHESIA [None]
  - MUSCLE INJURY [None]
  - PAIN [None]
  - RENAL FUNCTION TEST ABNORMAL [None]
